FAERS Safety Report 9166158 (Version 1)
Quarter: 2013Q1

REPORT INFORMATION
  Report Type: Spontaneous
  Country: FI (occurrence: FI)
  Receive Date: 20130315
  Receipt Date: 20130315
  Transmission Date: 20140127
  Serious: Yes (Hospitalization)
  Sender: FDA-Public Use
  Company Number: FI-PFIZER INC-2013085737

PATIENT
  Age: 60 Year
  Sex: Male

DRUGS (2)
  1. RAPAMUNE [Suspect]
     Dosage: 3 MG, 1X/DAY
     Route: 048
     Dates: start: 20110928
  2. MEDROL [Concomitant]
     Dosage: 12 MG, UNK
     Dates: start: 20110928

REACTIONS (2)
  - Cardiac failure [Recovered/Resolved with Sequelae]
  - Off label use [Unknown]
